FAERS Safety Report 4405658-9 (Version None)
Quarter: 2004Q3

REPORT INFORMATION
  Report Type: 
  Country: None (occurrence: None)
  Receive Date: 20040723
  Receipt Date: 20031105
  Transmission Date: 20050211
  Serious: No
  Sender: FDA-Public Use
  Company Number: US-GLAXOSMITHKLINE-A0433143A

PATIENT
  Age: 85 Year
  Sex: Male

DRUGS (11)
  1. AVANDIA [Suspect]
     Dosage: 4MG PER DAY
     Route: 048
     Dates: start: 20030801, end: 20031014
  2. SPIRONOLACTONE [Concomitant]
  3. BUMEX [Concomitant]
     Dosage: 2MG THREE TIMES PER DAY
     Route: 048
  4. LANTUS [Concomitant]
  5. GLUCOPHAGE [Concomitant]
     Dosage: 500MG PER DAY
     Route: 048
  6. DULCOLAX [Concomitant]
  7. VIT D [Concomitant]
  8. IRON [Concomitant]
  9. CLOTRIMAZOLE OINTMENT [Concomitant]
  10. CALCIUM [Concomitant]
  11. MULTI-VITAMIN [Concomitant]

REACTIONS (1)
  - HAEMOGLOBIN DECREASED [None]
